FAERS Safety Report 6088062-X (Version None)
Quarter: 2009Q1

REPORT INFORMATION
  Report Type: 
  Country: None (occurrence: None)
  Receive Date: 20090218
  Receipt Date: 20090211
  Transmission Date: 20090719
  Serious: Yes (Hospitalization)
  Sender: FDA-Public Use
  Company Number: PAR_02838_2009

PATIENT
  Age: 63 Year
  Sex: Female
  Weight: 75 kg

DRUGS (7)
  1. IBUPROFEN [Suspect]
     Indication: ARTHRALGIA
     Dosage: (500 MG QID ORAL)
     Route: 048
  2. IBUPROFEN [Suspect]
     Indication: BACK PAIN
     Dosage: (400 MG, RECTAL)
     Route: 054
  3. NADROPARIN (NADROPARIN) [Suspect]
     Indication: THROMBOSIS PROPHYLAXIS
     Dosage: (3800 IU 2X SUBCUTANEOUS)
     Route: 058
  4. BUPIVACAINE [Concomitant]
  5. PROPRANOLOL [Concomitant]
  6. RANITIDINE [Concomitant]
  7. PIRITRAMIDE [Concomitant]

REACTIONS (11)
  - ANAESTHETIC COMPLICATION [None]
  - BACK PAIN [None]
  - COAGULOPATHY [None]
  - DYSURIA [None]
  - EXTRADURAL HAEMATOMA [None]
  - INCISION SITE PAIN [None]
  - INJECTION SITE PAIN [None]
  - MUSCULAR WEAKNESS [None]
  - PARAESTHESIA [None]
  - POST PROCEDURAL HAEMORRHAGE [None]
  - SPINAL CORD INFARCTION [None]
